FAERS Safety Report 6818025-5 (Version None)
Quarter: 2010Q3

REPORT INFORMATION
  Report Type: 
  Country: None (occurrence: None)
  Receive Date: 20100706
  Receipt Date: 20100701
  Transmission Date: 20110219
  Serious: Yes (Other)
  Sender: FDA-Public Use
  Company Number: IT-CEPHALON-2010003574

PATIENT
  Sex: Female

DRUGS (7)
  1. EFFENTORA [Suspect]
     Indication: PAIN
     Route: 002
     Dates: start: 20100403, end: 20100422
  2. HYDROMORPHONE HCL [Suspect]
     Indication: PAIN
     Route: 048
     Dates: start: 20100104, end: 20100422
  3. AUGMENTIN '125' [Concomitant]
     Route: 048
  4. FAMVIR [Concomitant]
     Route: 048
  5. KESTINE [Concomitant]
     Route: 048
  6. AMITRIPTYLINE HCL [Concomitant]
     Route: 048
  7. OXYCONTIN [Concomitant]
     Route: 048

REACTIONS (1)
  - DERMATITIS EXFOLIATIVE [None]
